FAERS Safety Report 12544034 (Version 1)
Quarter: 2016Q3

REPORT INFORMATION
  Report Type: Spontaneous
  Country: US (occurrence: None)
  Receive Date: 20160708
  Receipt Date: 20160708
  Transmission Date: 20161109
  Serious: Yes (Other)
  Sender: FDA-Public Use
  Company Number: None

PATIENT
  Age: 62 Year
  Sex: Female

DRUGS (2)
  1. TASIGNA [Suspect]
     Active Substance: NILOTINIB
     Indication: CHRONIC MYELOID LEUKAEMIA
     Dosage: 150MG 2 CAPS 2 TIMES DAIL ORAL
     Route: 048
     Dates: start: 20130125
  2. TASIGNA [Suspect]
     Active Substance: NILOTINIB
     Indication: RENAL CANCER
     Dosage: 150MG 2 CAPS 2 TIMES DAIL ORAL
     Route: 048
     Dates: start: 20130125

REACTIONS (2)
  - Hepatic cirrhosis [None]
  - Oesophageal carcinoma [None]

NARRATIVE: CASE EVENT DATE: 20160429
